FAERS Safety Report 4917392-7 (Version None)
Quarter: 2006Q1

REPORT INFORMATION
  Report Type: 
  Country: None (occurrence: None)
  Receive Date: 20060221
  Receipt Date: 20060113
  Transmission Date: 20060701
  Serious: Yes (Other)
  Sender: FDA-Public Use
  Company Number: JP-JPN-A200600173

PATIENT
  Age: 75 Year
  Sex: Male
  Weight: 51 kg

DRUGS (7)
  1. PAXIL [Suspect]
     Indication: DEPRESSION
     Route: 048
     Dates: start: 20050817, end: 20051119
  2. RIZE [Suspect]
     Indication: NEUROSIS
     Dosage: 2.5MG PER DAY
     Route: 048
     Dates: start: 20050801, end: 20051227
  3. MENESIT [Concomitant]
     Indication: PARKINSONISM
     Dosage: 200MG PER DAY
     Route: 048
     Dates: start: 20050506, end: 20051227
  4. GASMOTIN [Concomitant]
     Indication: GASTRITIS
     Dosage: 15MG PER DAY
     Route: 048
     Dates: start: 20050514, end: 20051221
  5. MAGMITT [Concomitant]
     Indication: CONSTIPATION
     Dosage: 750MG PER DAY
     Route: 048
     Dates: start: 20050518, end: 20051227
  6. BI-SIFROL [Concomitant]
     Route: 048
  7. PRAMIPEXOLE DIHYDROCHLORIDE [Concomitant]
     Indication: PARKINSONISM
     Route: 048
     Dates: start: 20050514, end: 20051215

REACTIONS (7)
  - ALANINE AMINOTRANSFERASE INCREASED [None]
  - ASPARTATE AMINOTRANSFERASE INCREASED [None]
  - BLOOD CHOLINESTERASE INCREASED [None]
  - LIVER DISORDER [None]
  - PLATELET COUNT DECREASED [None]
  - RED BLOOD CELL COUNT DECREASED [None]
  - WHITE BLOOD CELL COUNT DECREASED [None]
